FAERS Safety Report 19380068 (Version 1)
Quarter: 2021Q2

REPORT INFORMATION
  Report Type: Spontaneous
  Country: DE (occurrence: DE)
  Receive Date: 20210607
  Receipt Date: 20210607
  Transmission Date: 20210717
  Serious: Yes (Other)
  Sender: FDA-Public Use
  Company Number: DE-JNJFOC-20210538592

PATIENT
  Age: 74 Year
  Sex: Male
  Weight: 60 kg

DRUGS (7)
  1. FLECAINIDE [Concomitant]
     Active Substance: FLECAINIDE
     Indication: CARDIAC DISORDER
     Dosage: FOREVER
     Route: 065
  2. ERLEADA [Suspect]
     Active Substance: APALUTAMIDE
     Indication: PRODUCT USED FOR UNKNOWN INDICATION
     Dosage: 1X4 TABLETS
     Route: 048
     Dates: start: 20201007
  3. TRENANTONE [Concomitant]
     Active Substance: LEUPROLIDE ACETATE
     Indication: PROSTATE CANCER
     Route: 065
     Dates: start: 202009
  4. ERLEADA [Suspect]
     Active Substance: APALUTAMIDE
     Dosage: 1X2 TABLETS
     Route: 048
  5. EVEROLIMUS. [Concomitant]
     Active Substance: EVEROLIMUS
     Indication: LIVER TRANSPLANT
     Route: 065
     Dates: start: 202010
  6. METOPROLOL. [Concomitant]
     Active Substance: METOPROLOL
     Indication: CARDIAC DISORDER
     Dosage: FOREVER
     Route: 065
  7. TACROLIMUS. [Concomitant]
     Active Substance: TACROLIMUS
     Indication: LIVER TRANSPLANT
     Route: 065

REACTIONS (4)
  - Hepatic fibrosis [Recovered/Resolved]
  - General physical health deterioration [Recovered/Resolved]
  - Memory impairment [Recovered/Resolved]
  - Headache [Recovered/Resolved]
